FAERS Safety Report 6931294-6 (Version None)
Quarter: 2010Q3

REPORT INFORMATION
  Report Type: 
  Country: None (occurrence: None)
  Receive Date: 20100818
  Receipt Date: 20100805
  Transmission Date: 20110219
  Serious: Yes (Other)
  Sender: FDA-Public Use
  Company Number: US-ELI_LILLY_AND_COMPANY-US201007004951

PATIENT
  Sex: Male

DRUGS (2)
  1. HUMULIN 70/30 [Suspect]
     Indication: DIABETES MELLITUS
     Dosage: 100 U, 2/D
  2. SYMLIN [Concomitant]

REACTIONS (3)
  - GANGRENE [None]
  - NEUROPATHY PERIPHERAL [None]
  - VASCULAR INSUFFICIENCY [None]
